FAERS Safety Report 6100832-8 (Version None)
Quarter: 2009Q1

REPORT INFORMATION
  Report Type: 
  Country: None (occurrence: None)
  Receive Date: 20090303
  Receipt Date: 20090223
  Transmission Date: 20090719
  Serious: Yes (Death)
  Sender: FDA-Public Use
  Company Number: US-ABBOTT-09P-163-0558522-00

PATIENT
  Sex: Male

DRUGS (3)
  1. TRICOR [Suspect]
     Indication: DRUG USE FOR UNKNOWN INDICATION
  2. NIASPAN [Suspect]
     Indication: DRUG USE FOR UNKNOWN INDICATION
  3. LIPITOR [Suspect]
     Indication: DRUG USE FOR UNKNOWN INDICATION

REACTIONS (1)
  - DEATH [None]
